FAERS Safety Report 15356917 (Version 1)
Quarter: 2018Q3

REPORT INFORMATION
  Report Type: Spontaneous
  Country: US (occurrence: US)
  Receive Date: 20180830
  Receipt Date: 20180830
  Transmission Date: 20181010
  Serious: Yes (Hospitalization, Disabling)
  Sender: FDA-Public Use
  Company Number: None

PATIENT
  Age: 11 Year
  Sex: Female
  Weight: 29.25 kg

DRUGS (4)
  1. GLYCERIN. [Concomitant]
     Active Substance: GLYCERIN
  2. VITAMIN C [Concomitant]
     Active Substance: ASCORBIC ACID
  3. MIRALAX [Suspect]
     Active Substance: POLYETHYLENE GLYCOL 3350
     Indication: CONSTIPATION
     Dosage: ?          QUANTITY:1 CAPFUL;?
     Route: 048
     Dates: start: 20080101, end: 20180808
  4. SODIUM CHLORIDE. [Concomitant]
     Active Substance: SODIUM CHLORIDE

REACTIONS (16)
  - Encopresis [None]
  - Arthralgia [None]
  - Anxiety [None]
  - Obsessive-compulsive disorder [None]
  - Syncope [None]
  - Tourette^s disorder [None]
  - Migraine [None]
  - Visual impairment [None]
  - Intentional self-injury [None]
  - Depression [None]
  - Anger [None]
  - Gait inability [None]
  - Headache [None]
  - Constipation [None]
  - Suicidal ideation [None]
  - Aggression [None]

NARRATIVE: CASE EVENT DATE: 20100101
